FAERS Safety Report 6177024-X (Version None)
Quarter: 2009Q2

REPORT INFORMATION
  Report Type: 
  Country: None (occurrence: None)
  Receive Date: 20090501
  Receipt Date: 20090309
  Transmission Date: 20091009
  Serious: Yes (Other)
  Sender: FDA-Public Use
  Company Number: US-ALEXION-A200900161

PATIENT
  Sex: Male

DRUGS (6)
  1. SOLIRIS [Suspect]
     Indication: PAROXYSMAL NOCTURNAL HAEMOGLOBINURIA
     Dosage: 600 MG, QW
     Route: 042
     Dates: start: 20070509, end: 20070530
  2. SOLIRIS [Suspect]
     Dosage: 900 MG, Q2W
     Route: 042
     Dates: start: 20070606
  3. NYSTATIN [Concomitant]
     Dosage: UNK
     Route: 048
  4. ROXICET [Concomitant]
     Dosage: UNK
     Route: 048
  5. ATROVENT [Concomitant]
     Dosage: UNK
  6. CLINDAMYCIN HCL [Concomitant]
     Dosage: UNK
     Route: 048

REACTIONS (4)
  - CHROMATURIA [None]
  - FATIGUE [None]
  - OBSTRUCTIVE AIRWAYS DISORDER [None]
  - PAIN [None]
